FAERS Safety Report 8968718 (Version 1)
Quarter: 2012Q4

REPORT INFORMATION
  Report Type: 
  Country: US (occurrence: US)
  Receive Date: 20121218
  Receipt Date: 20121218
  Transmission Date: 20130627
  Serious: Yes (Hospitalization)
  Sender: FDA-Public Use
  Company Number: US-BRISTOL-MYERS SQUIBB COMPANY-16714735

PATIENT
  Age: 54 Year
  Sex: Male

DRUGS (3)
  1. ABILIFY [Suspect]
     Indication: BIPOLAR DISORDER
     Dates: start: 201006
  2. INVEGA [Suspect]
  3. LEXAPRO [Concomitant]

REACTIONS (1)
  - Extrapyramidal disorder [Recovered/Resolved]
